FAERS Safety Report 6040224-3 (Version None)
Quarter: 2009Q1

REPORT INFORMATION
  Report Type: 
  Country: None (occurrence: None)
  Receive Date: 20090116
  Receipt Date: 20080213
  Transmission Date: 20090719
  Serious: No
  Sender: FDA-Public Use
  Company Number: US-BRISTOL-MYERS SQUIBB COMPANY-14045819

PATIENT
  Age: 55 Year
  Sex: Female

DRUGS (7)
  1. ABILIFY [Suspect]
     Indication: SCHIZOAFFECTIVE DISORDER
     Dosage: DOSE 15 MG- 30 MG.
     Route: 048
     Dates: start: 20040209, end: 20070512
  2. PREMARIN [Concomitant]
  3. WELLBUTRIN SR [Concomitant]
     Dates: start: 20041102
  4. ZYPREXA [Concomitant]
     Dates: start: 20050301
  5. MEDROXYPROGESTERONE [Concomitant]
     Dates: start: 20040301
  6. KLONOPIN [Concomitant]
     Dates: start: 20040301
  7. LAMICTAL [Concomitant]
     Dates: start: 20040806

REACTIONS (1)
  - WEIGHT DECREASED [None]
